FAERS Safety Report 8101849-4 (Version None)
Quarter: 2012Q1

REPORT INFORMATION
  Report Type: 
  Country: None (occurrence: None)
  Receive Date: 20120131
  Receipt Date: 20120126
  Transmission Date: 20120608
  Serious: Yes (Hospitalization)
  Sender: FDA-Public Use
  Company Number: PHHY2012CH007045

PATIENT
  Age: 59 Year
  Sex: Female
  Weight: 55 kg

DRUGS (8)
  1. ASPIRIN [Concomitant]
     Dosage: 100 MG, QD
     Route: 048
     Dates: start: 20111116
  2. PREDNISONE [Concomitant]
     Dosage: 50 MG, QD
     Route: 048
  3. BACTRIM [Concomitant]
     Dosage: 480 MG, QD
     Route: 048
     Dates: start: 20111119
  4. MYFORTIC [Suspect]
     Indication: IMMUNOSUPPRESSION
     Dosage: 360 MG, BID
     Dates: start: 20111104, end: 20111123
  5. NEORAL [Suspect]
     Indication: IMMUNOSUPPRESSION
     Dosage: 200 MG, BID
     Dates: start: 20111104, end: 20111123
  6. NEXIUM [Concomitant]
     Dosage: 40 MG, QD
  7. TENORMIN [Concomitant]
     Dosage: 25 MG, QD
     Route: 048
  8. ZOLDORM [Concomitant]
     Dosage: 5 MG, QD
     Route: 048

REACTIONS (6)
  - ILEUS PARALYTIC [None]
  - SEPSIS [None]
  - DIARRHOEA [None]
  - VOMITING [None]
  - INTESTINAL DILATATION [None]
  - ABDOMINAL PAIN [None]
